FAERS Safety Report 8409245-7 (Version None)
Quarter: 2012Q2

REPORT INFORMATION
  Report Type: 
  Country: None (occurrence: None)
  Receive Date: 20120604
  Receipt Date: 20120529
  Transmission Date: 20120825
  Serious: Yes (Other)
  Sender: FDA-Public Use
  Company Number: US-BAYER-2012-054463

PATIENT
  Age: 78 Year
  Sex: Male
  Weight: 77 kg

DRUGS (10)
  1. LOVASTATIN [Concomitant]
  2. NASAL DROPS [Concomitant]
  3. ADVAIR DISKUS 100/50 [Concomitant]
  4. ALEVE (CAPLET) [Suspect]
     Dosage: 440 MG, QD
     Route: 048
     Dates: start: 20120501, end: 20120516
  5. METFORMIN HCL [Concomitant]
  6. STOOL SOFTENER [Concomitant]
  7. ASPIRIN [Concomitant]
  8. LORATADINE [Concomitant]
  9. MULTI-VITAMINS [Concomitant]
  10. ANTIBIOTICS [Concomitant]

REACTIONS (2)
  - HEART RATE IRREGULAR [None]
  - CARDIAC DISORDER [None]
